FAERS Safety Report 8093026-0 (Version None)
Quarter: 2012Q1

REPORT INFORMATION
  Report Type: 
  Country: None (occurrence: None)
  Receive Date: 20120128
  Receipt Date: 20111018
  Transmission Date: 20120608
  Serious: No
  Sender: FDA-Public Use
  Company Number: US-ABBOTT-10P-163-0681657-00

PATIENT
  Sex: Female
  Weight: 68.1 kg

DRUGS (2)
  1. MOTRIN [Concomitant]
     Indication: PRODUCT USED FOR UNKNOWN INDICATION
  2. HUMIRA [Suspect]
     Indication: RHEUMATOID ARTHRITIS
     Route: 058
     Dates: start: 20100722, end: 20111001

REACTIONS (2)
  - TREMOR [None]
  - VERTIGO [None]
